FAERS Safety Report 6241650-X (Version None)
Quarter: 2009Q2

REPORT INFORMATION
  Report Type: 
  Country: None (occurrence: None)
  Receive Date: 20090623
  Receipt Date: 20050216
  Transmission Date: 20091009
  Serious: Yes (Hospitalization)
  Sender: FDA-Public Use
  Company Number: ES-ROCHE-395681

PATIENT
  Sex: Male
  Weight: 64.7 kg

DRUGS (34)
  1. MYCOPHENOLATE MOFETIL [Suspect]
     Route: 048
     Dates: start: 20040727, end: 20041128
  2. MYCOPHENOLATE MOFETIL [Suspect]
     Route: 048
     Dates: end: 20041213
  3. MYCOPHENOLATE MOFETIL [Suspect]
     Route: 048
     Dates: start: 20031022, end: 20031024
  4. MYCOPHENOLATE MOFETIL [Suspect]
     Route: 048
     Dates: start: 20031025, end: 20031031
  5. MYCOPHENOLATE MOFETIL [Suspect]
     Route: 048
     Dates: start: 20031101, end: 20031110
  6. MYCOPHENOLATE MOFETIL [Suspect]
     Route: 048
     Dates: start: 20031111, end: 20040726
  7. MYCOPHENOLATE MOFETIL [Suspect]
     Route: 048
     Dates: start: 20041129
  8. DACLIZUMAB [Suspect]
     Route: 042
     Dates: start: 20031022
  9. DACLIZUMAB [Suspect]
     Route: 042
     Dates: start: 20031104, end: 20031218
  10. CYCLOSPORINE [Suspect]
     Dosage: DRUG: CICLOSPORINA
     Route: 042
     Dates: start: 20031022, end: 20031022
  11. CYCLOSPORINE [Suspect]
     Route: 042
     Dates: start: 20031023, end: 20031023
  12. CYCLOSPORINE [Suspect]
     Route: 048
     Dates: start: 20031024, end: 20040119
  13. CYCLOSPORINE [Suspect]
     Route: 048
     Dates: start: 20040120, end: 20041212
  14. CYCLOSPORINE [Suspect]
     Route: 048
     Dates: start: 20041223, end: 20050809
  15. CYCLOSPORINE [Suspect]
     Route: 048
     Dates: start: 20050810
  16. CYCLOSPORINE [Suspect]
     Route: 048
     Dates: start: 20041213, end: 20041222
  17. CORTICOSTEROIDS [Suspect]
     Route: 048
     Dates: start: 20031026, end: 20031103
  18. CORTICOSTEROIDS [Suspect]
     Route: 048
     Dates: start: 20031104
  19. CORTICOSTEROIDS [Suspect]
     Route: 042
     Dates: start: 20031022, end: 20031022
  20. CORTICOSTEROIDS [Suspect]
     Route: 042
     Dates: start: 20031023, end: 20031025
  21. PHOSPHATE [Concomitant]
     Route: 048
     Dates: start: 20031105, end: 20031111
  22. PHOSPHATE [Concomitant]
     Route: 048
     Dates: start: 20041129, end: 20041213
  23. OMEPRAZOLE [Concomitant]
     Route: 048
     Dates: start: 20031023, end: 20031025
  24. OMEPRAZOLE [Concomitant]
     Route: 048
     Dates: start: 20031026, end: 20040302
  25. ALPRAZOLAM [Concomitant]
     Route: 048
     Dates: start: 20041129
  26. ATENOLOL [Concomitant]
     Route: 048
     Dates: start: 20031025, end: 20031110
  27. ATENOLOL [Concomitant]
     Route: 048
     Dates: start: 20031111, end: 20041129
  28. CANDESARTAN [Concomitant]
     Route: 048
     Dates: start: 20031120, end: 20041129
  29. COTRIM [Concomitant]
     Route: 048
     Dates: start: 20031029
  30. GANCICLOVIR [Concomitant]
     Route: 042
     Dates: start: 20031022, end: 20031104
  31. NIFEDIPINO [Concomitant]
     Route: 048
     Dates: start: 20031024
  32. NISTATINA [Concomitant]
     Route: 048
     Dates: start: 20031025, end: 20031111
  33. PANTOPRAZOL [Concomitant]
     Route: 048
     Dates: start: 20040302
  34. VALGANCICLOVIR HCL [Concomitant]
     Route: 048
     Dates: start: 20031105, end: 20040120

REACTIONS (6)
  - ABDOMINAL PAIN [None]
  - ASTHENIA [None]
  - DEHYDRATION [None]
  - RENAL IMPAIRMENT [None]
  - VOMITING [None]
  - WEIGHT DECREASED [None]
